FAERS Safety Report 9671218 (Version 1)
Quarter: 2013Q4

REPORT INFORMATION
  Report Type: Spontaneous
  Country: US (occurrence: US)
  Receive Date: 20131106
  Receipt Date: 20131106
  Transmission Date: 20140711
  Serious: No
  Sender: FDA-Public Use
  Company Number: US-PFIZER INC-2013314767

PATIENT
  Age: 47 Year
  Sex: Female
  Weight: 88.44 kg

DRUGS (5)
  1. CELEBREX [Suspect]
     Indication: ARTHRITIS
     Dosage: 100 MG, 2X/DAY
     Dates: start: 20131030
  2. CELEBREX [Suspect]
     Indication: INFLAMMATION
  3. AMIODARONE [Concomitant]
     Indication: HEART RATE IRREGULAR
     Dosage: UNK
  4. PLAVIX [Concomitant]
     Dosage: UNK
  5. ZOCOR [Concomitant]
     Dosage: UNK

REACTIONS (1)
  - Swelling [Unknown]
